FAERS Safety Report 20460312 (Version 1)
Quarter: 2022Q1

REPORT INFORMATION
  Report Type: Spontaneous
  Country: US (occurrence: US)
  Receive Date: 20220211
  Receipt Date: 20220211
  Transmission Date: 20220423
  Serious: No
  Sender: FDA-Public Use
  Company Number: US-ALKEM LABORATORIES LIMITED-US-ALKEM-2021-01980

PATIENT
  Age: 70 Year
  Sex: Female

DRUGS (2)
  1. CEPHALEXIN [Suspect]
     Active Substance: CEPHALEXIN
     Indication: Oral infection
     Dosage: 1 DOSAGE FORM
     Route: 048
     Dates: start: 20210329
  2. AMOXICILLIN [Concomitant]
     Active Substance: AMOXICILLIN
     Indication: Oral infection
     Dosage: UNK
     Route: 048
     Dates: start: 20210325

REACTIONS (1)
  - Pain [Unknown]
